FAERS Safety Report 20656636 (Version 1)
Quarter: 2022Q1

REPORT INFORMATION
  Report Type: Spontaneous
  Country: CA (occurrence: CA)
  Receive Date: 20220331
  Receipt Date: 20220331
  Transmission Date: 20220423
  Serious: Yes (Other)
  Sender: FDA-Public Use
  Company Number: CA-CELLTRION INC.-2022CA003624

PATIENT

DRUGS (4)
  1. INFLIXIMAB [Suspect]
     Active Substance: INFLIXIMAB
     Indication: Crohn^s disease
     Dosage: 200 MG
     Route: 042
  2. PREDNISONE [Suspect]
     Active Substance: PREDNISONE
     Dosage: 1 DF
  3. MESALAMINE [Concomitant]
     Active Substance: MESALAMINE
     Dosage: 1 DF
  4. INFLECTRA [Concomitant]
     Active Substance: INFLIXIMAB-DYYB
     Indication: Crohn^s disease
     Dosage: 200 MG
     Route: 042

REACTIONS (3)
  - Cachexia [Not Recovered/Not Resolved]
  - Delirium [Not Recovered/Not Resolved]
  - Weight increased [Not Recovered/Not Resolved]
